FAERS Safety Report 14313633 (Version 1)
Quarter: 2017Q4

REPORT INFORMATION
  Report Type: Spontaneous
  Country: US (occurrence: US)
  Receive Date: 20171220
  Receipt Date: 20171220
  Transmission Date: 20180321
  Serious: No
  Sender: FDA-Public Use
  Company Number: None

PATIENT
  Age: 59 Year
  Sex: Female

DRUGS (1)
  1. BOTOX [Suspect]
     Active Substance: ONABOTULINUMTOXINA

REACTIONS (4)
  - Fall [None]
  - Paralysis [None]
  - Incorrect dose administered [None]
  - Hypoaesthesia [None]

NARRATIVE: CASE EVENT DATE: 20171220
